FAERS Safety Report 6659117-3 (Version None)
Quarter: 2010Q1

REPORT INFORMATION
  Report Type: 
  Country: None (occurrence: None)
  Receive Date: 20100330
  Receipt Date: 20100316
  Transmission Date: 20100710
  Serious: No
  Sender: FDA-Public Use
  Company Number: US-BIOGENIDEC-2010BI008977

PATIENT
  Age: 38 Year
  Sex: Female

DRUGS (1)
  1. TYSABRI [Suspect]
     Indication: MULTIPLE SCLEROSIS
     Route: 042
     Dates: start: 20090317

REACTIONS (6)
  - ABASIA [None]
  - DECREASED APPETITE [None]
  - FALL [None]
  - HEADACHE [None]
  - INCREASED TENDENCY TO BRUISE [None]
  - WEIGHT DECREASED [None]
